FAERS Safety Report 6753173-X (Version None)
Quarter: 2010Q2

REPORT INFORMATION
  Report Type: 
  Country: None (occurrence: None)
  Receive Date: 20100601
  Receipt Date: 20100519
  Transmission Date: 20101027
  Serious: No
  Sender: FDA-Public Use
  Company Number: 2010050046

PATIENT
  Age: 83 Year
  Sex: Female

DRUGS (2)
  1. ONSOLIS [Suspect]
     Dosage: BU
     Route: 002
  2. OPANA [Concomitant]

REACTIONS (1)
  - INCORRECT DOSE ADMINISTERED [None]
